FAERS Safety Report 5044746-3 (Version None)
Quarter: 2006Q2

REPORT INFORMATION
  Report Type: 
  Country: None (occurrence: None)
  Receive Date: 20060601
  Receipt Date: 20060421
  Transmission Date: 20061013
  Serious: No
  Sender: FDA-Public Use
  Company Number: 2006-BP-02232BP

PATIENT
  Age: 56 Year
  Sex: Female

DRUGS (8)
  1. SPIRIVA [Suspect]
     Indication: CHRONIC OBSTRUCTIVE PULMONARY DISEASE
     Dosage: 18 MCG (18 MCG, 1 IN 1 D) IH
     Route: 042
     Dates: start: 20051001
  2. SPIRIVA [Suspect]
  3. SPIRIVA [Suspect]
  4. COMBIVENT (COMBIVENT / 01261001/ ) [Concomitant]
  5. FLOVENT [Concomitant]
  6. ALBUTEROL SPIROS [Concomitant]
  7. NASONEX [Concomitant]
  8. CELEXA [Concomitant]

REACTIONS (2)
  - DYSPNOEA EXACERBATED [None]
  - WHEEZING [None]
